FAERS Safety Report 4921489-5 (Version None)
Quarter: 2006Q1

REPORT INFORMATION
  Report Type: 
  Country: None (occurrence: None)
  Receive Date: 20060221
  Receipt Date: 20060208
  Transmission Date: 20060701
  Serious: Yes (Hospitalization)
  Sender: FDA-Public Use
  Company Number: 2006019513

PATIENT
  Age: 59 Year
  Sex: Male

DRUGS (13)
  1. SUTENT [Suspect]
     Indication: METASTATIC RENAL CELL CARCINOMA
     Dosage: 50 MG(50 MG, DAILY INTERVAL: EVERY DAY), ORAL
     Route: 048
     Dates: start: 20051122, end: 20051213
  2. ENOXAPARIN SODIUM [Concomitant]
  3. ALL OTHER THERAPEUTIC PRODUCTS (ALL OTHER THERAPEUTIC PRODUCTS) [Concomitant]
  4. PRAVASTATIN [Concomitant]
  5. OMEPRAZOLE [Concomitant]
  6. FUROSEMIDE [Concomitant]
  7. POTASSIUM CANRENOATE [Concomitant]
  8. TRAMADOL HCL [Concomitant]
  9. SALBUTAMOL [Concomitant]
  10. OXITROPIUM BROMIDE [Concomitant]
  11. PREDNISOLONE [Concomitant]
  12. CEFOTRAXIME [Concomitant]
  13. GALENIC /SPIRONOLACTONE/FUROSEMIDE/ (FUROSEMIDE, SPIRONOLACTONE) [Concomitant]

REACTIONS (3)
  - DYSPNOEA [None]
  - HAEMOPTYSIS [None]
  - RENAL FAILURE [None]
